FAERS Safety Report 9330823 (Version 12)
Quarter: 2019Q4

REPORT INFORMATION
  Report Type: Report from Study
  Country: CA (occurrence: CA)
  Receive Date: 20130605
  Receipt Date: 20191016
  Transmission Date: 20200122
  Serious: Yes (Other)
  Sender: FDA-Public Use
  Company Number: PHHY2013CA047623

PATIENT
  Age: 50 Year
  Sex: Male

DRUGS (5)
  1. TASIGNA [Suspect]
     Active Substance: NILOTINIB
     Indication: CHRONIC MYELOID LEUKAEMIA
     Dosage: 150 MG, BID
     Route: 048
     Dates: start: 20130429, end: 201509
  2. ZOPICLONE [Concomitant]
     Active Substance: ZOPICLONE
     Indication: PRODUCT USED FOR UNKNOWN INDICATION
     Dosage: 7.5 MG
     Route: 065
  3. CANDESARTAN. [Concomitant]
     Active Substance: CANDESARTAN
     Indication: PRODUCT USED FOR UNKNOWN INDICATION
     Route: 065
  4. LOSARTAN. [Concomitant]
     Active Substance: LOSARTAN
     Indication: PRODUCT USED FOR UNKNOWN INDICATION
     Route: 065
  5. HYDROCHLOROTHIAZIDE. [Concomitant]
     Active Substance: HYDROCHLOROTHIAZIDE
     Indication: PRODUCT USED FOR UNKNOWN INDICATION
     Route: 065

REACTIONS (20)
  - Haematochezia [Unknown]
  - Dizziness [Unknown]
  - Haemorrhoidal haemorrhage [Recovering/Resolving]
  - Disturbance in attention [Unknown]
  - Fatigue [Unknown]
  - Food interaction [Unknown]
  - Drug intolerance [Unknown]
  - Nausea [Unknown]
  - Hypertension [Unknown]
  - Constipation [Unknown]
  - Vomiting [Unknown]
  - Myalgia [Unknown]
  - Pain in extremity [Unknown]
  - Anal fissure [Recovering/Resolving]
  - Cardiotoxicity [Unknown]
  - Flatulence [Unknown]
  - Proctalgia [Not Recovered/Not Resolved]
  - Impaired healing [Unknown]
  - Bone pain [Unknown]
  - Abdominal pain [Unknown]

NARRATIVE: CASE EVENT DATE: 20130510
